FAERS Safety Report 19888731 (Version 2)
Quarter: 2021Q4

REPORT INFORMATION
  Report Type: Spontaneous
  Country: US (occurrence: US)
  Receive Date: 20210927
  Receipt Date: 20211009
  Transmission Date: 20220303
  Serious: Yes (Other)
  Sender: FDA-Public Use
  Company Number: US-009507513-2109USA006112

PATIENT
  Age: 70 Year
  Sex: Female

DRUGS (1)
  1. KEYTRUDA [Suspect]
     Active Substance: PEMBROLIZUMAB
     Indication: Bladder cancer recurrent
     Dosage: 200 MILLIGRAM, Q3W
     Route: 042

REACTIONS (2)
  - Hepatotoxicity [Recovered/Resolved]
  - Off label use [Unknown]
